FAERS Safety Report 5495562-X (Version None)
Quarter: 2007Q4

REPORT INFORMATION
  Report Type: 
  Country: None (occurrence: None)
  Receive Date: 20071025
  Receipt Date: 20071016
  Transmission Date: 20080405
  Serious: Yes (Other)
  Sender: FDA-Public Use
  Company Number: PHBS2007GR17488

PATIENT
  Age: 46 Year
  Sex: Male

DRUGS (1)
  1. TRILEPTAL [Suspect]
     Indication: HEAD INJURY
     Dosage: 600 MG UP TO 1500 MG/DAY
     Dates: start: 20010101

REACTIONS (2)
  - CONVULSION [None]
  - DEPRESSION [None]
